FAERS Safety Report 9685345 (Version 5)
Quarter: 2016Q3

REPORT INFORMATION
  Report Type: Report from Study
  Country: JP (occurrence: JP)
  Receive Date: 20131113
  Receipt Date: 20160901
  Transmission Date: 20161109
  Serious: Yes (Death)
  Sender: FDA-Public Use
  Company Number: PHHY2012JP039126

PATIENT
  Age: 35 Year
  Sex: Male
  Weight: 64 kg

DRUGS (12)
  1. AFINITOR [Suspect]
     Active Substance: EVEROLIMUS
     Indication: PANCREATIC NEUROENDOCRINE TUMOUR
     Dosage: 10 MG, UNK
     Route: 048
     Dates: start: 20120418, end: 20120503
  2. LENDORMIN [Concomitant]
     Active Substance: BROTIZOLAM
     Dosage: 0.25 MG
     Route: 048
  3. MIYA-BM [Concomitant]
     Active Substance: CLOSTRIDIUM BUTYRICUM SPORES STRAIN M-55
     Dosage: 2 DF
     Route: 048
  4. PARIET [Concomitant]
     Active Substance: RABEPRAZOLE SODIUM
     Dosage: 20 MG
     Route: 048
  5. OXYCONTIN [Concomitant]
     Active Substance: OXYCODONE HYDROCHLORIDE
     Dosage: 80 MG
     Route: 048
  6. MAGLAX [Concomitant]
     Active Substance: MAGNESIUM OXIDE
     Dosage: 990 MG
     Route: 048
  7. METASTRON [Concomitant]
     Active Substance: STRONTIUM CHLORIDE SR-89
     Dosage: UNK UKN, UNK
     Dates: start: 200910
  8. AFINITOR [Suspect]
     Active Substance: EVEROLIMUS
     Indication: RADIOTHERAPY TO BONE
     Dosage: 5 MG, UNK
     Route: 048
     Dates: start: 20120526, end: 20121115
  9. AFINITOR [Suspect]
     Active Substance: EVEROLIMUS
     Indication: PROPHYLAXIS
  10. AFINITOR [Suspect]
     Active Substance: EVEROLIMUS
     Indication: RADIOTHERAPY TO LUNG
     Dosage: 10 UNK, UNK
     Route: 048
     Dates: start: 20121116, end: 20121227
  11. BAKTAR [Concomitant]
     Active Substance: SULFAMETHOXAZOLE\TRIMETHOPRIM
     Dosage: 1 DF
     Route: 048
  12. CALONAL [Concomitant]
     Active Substance: ACETAMINOPHEN
     Dosage: 600 MG
     Route: 048

REACTIONS (10)
  - Blood phosphorus decreased [Unknown]
  - Malignant neoplasm progression [Unknown]
  - Back pain [Not Recovered/Not Resolved]
  - Oedema peripheral [Recovering/Resolving]
  - Blood bilirubin increased [Not Recovered/Not Resolved]
  - Death [Fatal]
  - Blood albumin decreased [Unknown]
  - Platelet count decreased [Recovered/Resolved]
  - Blood glucose increased [Unknown]
  - Pancreatic neuroendocrine tumour [Not Recovered/Not Resolved]

NARRATIVE: CASE EVENT DATE: 20120502
